FAERS Safety Report 10423030 (Version 1)
Quarter: 2014Q3

REPORT INFORMATION
  Report Type: Spontaneous
  Country: US (occurrence: US)
  Receive Date: 20140902
  Receipt Date: 20140902
  Transmission Date: 20150326
  Serious: Yes (Other)
  Sender: FDA-Public Use
  Company Number: US-JNJCP-30000237479

PATIENT
  Sex: Female
  Weight: 88 kg

DRUGS (3)
  1. NEUTROGENA WET SKIN SWIM HUMIDITY SWEAT SUNSCREEN BROAD SPECTRUM SPF30 [Suspect]
     Active Substance: AVOBENZONE\HOMOSALATE\OCTISALATE\OCTOCRYLENE\OXYBENZONE
     Indication: PROPHYLAXIS
     Dosage: SHOT GLASS WORTH, DAILY
     Route: 061
  2. VITAMIN D [Concomitant]
     Active Substance: CHOLECALCIFEROL
     Indication: VITAMIN SUPPLEMENTATION
     Dosage: 2000 IU PER DAILY, SINCE SIX MONTHS
  3. CELXA [Concomitant]
     Indication: DEPRESSION
     Dosage: 20MG PER DAILY SINCE SIX MONTHS

REACTIONS (1)
  - Malignant melanoma [Recovering/Resolving]

NARRATIVE: CASE EVENT DATE: 201407
